FAERS Safety Report 7580102-1 (Version None)
Quarter: 2011Q2

REPORT INFORMATION
  Report Type: 
  Country: None (occurrence: None)
  Receive Date: 20110629
  Receipt Date: 20110620
  Transmission Date: 20111010
  Serious: Yes (Other)
  Sender: FDA-Public Use
  Company Number: BR-ELI_LILLY_AND_COMPANY-BR201106006021

PATIENT
  Sex: Female

DRUGS (6)
  1. CILOSTAZOL [Concomitant]
     Indication: CARDIOVASCULAR DISORDER
     Dosage: 50 MG, QD
     Route: 065
  2. VITAMINS NOS [Concomitant]
     Indication: VITAMIN SUPPLEMENTATION
     Dosage: UNK
     Route: 065
  3. ZYPREXA [Suspect]
     Indication: SCHIZOPHRENIA
     Dosage: 5 MG, UNKNOWN
     Route: 065
     Dates: start: 20020101, end: 20110616
  4. AMARYL [Concomitant]
     Indication: DIABETES MELLITUS
     Dosage: 2 MG, UNKNOWN
     Route: 065
  5. AMLODIPINO                         /00972401/ [Concomitant]
     Indication: HYPERTENSION
     Dosage: 5 MG, EACH EVENING
     Route: 065
  6. BENICAR [Concomitant]
     Indication: HYPERTENSION
     Dosage: 40 MG, QD
     Route: 065

REACTIONS (3)
  - URINARY TRACT INFECTION [None]
  - INTENTIONAL DRUG MISUSE [None]
  - BREAST NEOPLASM [None]
